FAERS Safety Report 24210728 (Version 1)
Quarter: 2024Q3

REPORT INFORMATION
  Report Type: Spontaneous
  Country: US (occurrence: None)
  Receive Date: 20240813
  Receipt Date: 20240813
  Transmission Date: 20241016
  Serious: Yes (Other)
  Sender: Public
  Company Number: None

PATIENT
  Age: 65 Year
  Sex: Female
  Weight: 49.9 kg

DRUGS (2)
  1. CLINDAMYCIN [Suspect]
     Active Substance: CLINDAMYCIN
     Dosage: OTHER QUANTITY : 1 A DAY ?OTHER FREQUENCY : 1 A DAY FOR 4 DAYS?
     Route: 048
     Dates: start: 20230707, end: 20230707
  2. MULTIVITAMIN [Concomitant]

REACTIONS (6)
  - Abdominal discomfort [None]
  - Dizziness [None]
  - Diarrhoea [None]
  - Therapy cessation [None]
  - Illness [None]
  - Product formulation issue [None]

NARRATIVE: CASE EVENT DATE: 20230707
